FAERS Safety Report 8394430-3 (Version None)
Quarter: 2012Q2

REPORT INFORMATION
  Report Type: 
  Country: None (occurrence: None)
  Receive Date: 20120530
  Receipt Date: 20120523
  Transmission Date: 20120825
  Serious: Yes (Other)
  Sender: FDA-Public Use
  Company Number: PHFR2012GB003146

PATIENT
  Sex: Female

DRUGS (1)
  1. TEGRETOL [Suspect]
     Dosage: 1000 MG, (400 MG TWICE A DAY AND 200 MG IN A NIGHT)
     Dates: start: 20090101

REACTIONS (3)
  - INSOMNIA [None]
  - DRUG INTOLERANCE [None]
  - MENTAL DISORDER [None]
